FAERS Safety Report 22188789 (Version 2)
Quarter: 2023Q2

REPORT INFORMATION
  Report Type: Report from Study
  Country: CA (occurrence: CA)
  Receive Date: 20230409
  Receipt Date: 20230511
  Transmission Date: 20230721
  Serious: Yes (Death, Other)
  Sender: FDA-Public Use
  Company Number: CA-GLAXOSMITHKLINE-CA2023AMR050116

PATIENT
  Age: 61 Year
  Sex: Female

DRUGS (1)
  1. AMBRISENTAN [Suspect]
     Active Substance: AMBRISENTAN
     Indication: Pulmonary hypertension
     Dosage: 5 MG, QD
     Route: 065
     Dates: start: 20190209

REACTIONS (1)
  - Death [Fatal]

NARRATIVE: CASE EVENT DATE: 20230404
